FAERS Safety Report 10791854 (Version 14)
Quarter: 2019Q4

REPORT INFORMATION
  Report Type: Spontaneous
  Country: CA (occurrence: CA)
  Receive Date: 20150213
  Receipt Date: 20191202
  Transmission Date: 20200122
  Serious: Yes (Other)
  Sender: FDA-Public Use
  Company Number: CA-ROCHE-1538173

PATIENT
  Age: 67 Year
  Sex: Female

DRUGS (8)
  1. XOLAIR [Suspect]
     Active Substance: OMALIZUMAB
     Dosage: UNK
     Route: 058
     Dates: start: 20171101
  2. XOLAIR [Suspect]
     Active Substance: OMALIZUMAB
     Route: 058
     Dates: start: 20190506
  3. PREDNISONE. [Concomitant]
     Active Substance: PREDNISONE
     Indication: PRODUCT USED FOR UNKNOWN INDICATION
     Route: 065
  4. XOLAIR [Suspect]
     Active Substance: OMALIZUMAB
     Indication: ASTHMA
     Route: 058
     Dates: start: 20070426
  5. XOLAIR [Suspect]
     Active Substance: OMALIZUMAB
     Dosage: UNK
     Route: 058
     Dates: start: 20161005
  6. XOLAIR [Suspect]
     Active Substance: OMALIZUMAB
     Route: 058
     Dates: start: 20190422
  7. XOLAIR [Suspect]
     Active Substance: OMALIZUMAB
     Route: 058
     Dates: start: 20180524
  8. XOLAIR [Suspect]
     Active Substance: OMALIZUMAB
     Dosage: UNK
     Route: 058
     Dates: start: 20170906

REACTIONS (16)
  - Bronchitis [Unknown]
  - Road traffic accident [Unknown]
  - Cough [Not Recovered/Not Resolved]
  - Hyperaesthesia [Unknown]
  - Productive cough [Recovering/Resolving]
  - Multiple fractures [Recovered/Resolved]
  - Rib fracture [Recovered/Resolved]
  - Pain [Unknown]
  - Pruritus [Unknown]
  - Nasopharyngitis [Unknown]
  - Sputum discoloured [Not Recovered/Not Resolved]
  - Fall [Unknown]
  - Headache [Recovering/Resolving]
  - Post procedural oedema [Unknown]
  - Fatigue [Unknown]
  - Rash papular [Unknown]

NARRATIVE: CASE EVENT DATE: 20150201
